FAERS Safety Report 7884389-7 (Version None)
Quarter: 2011Q4

REPORT INFORMATION
  Report Type: 
  Country: None (occurrence: None)
  Receive Date: 20111102
  Receipt Date: 20111024
  Transmission Date: 20120403
  Serious: Yes (Other)
  Sender: FDA-Public Use
  Company Number: US-JNJFOC-20110901978

PATIENT
  Sex: Male
  Weight: 97.98 kg

DRUGS (22)
  1. REMICADE [Suspect]
     Route: 042
     Dates: start: 20110628
  2. REMICADE [Suspect]
     Route: 042
     Dates: start: 20110810
  3. DIOVAN [Concomitant]
     Indication: BLOOD PRESSURE
     Route: 048
     Dates: start: 20040101
  4. CLOBETASOL [Concomitant]
     Indication: PSORIASIS
     Route: 061
  5. FLUTICASONE PROPIONATE [Concomitant]
     Indication: ALLERGIC RESPIRATORY DISEASE
     Route: 045
  6. REMICADE [Suspect]
     Route: 042
     Dates: start: 20110610
  7. TRAZODONE HYDROCHLORIDE [Concomitant]
     Indication: SLEEP DISORDER
     Route: 048
     Dates: start: 20060101
  8. TRAMADOL HCL [Concomitant]
     Indication: PAIN
     Route: 048
     Dates: start: 20090101
  9. REMICADE [Suspect]
     Indication: ANKYLOSING SPONDYLITIS
     Route: 042
     Dates: start: 20110628
  10. OMEPRAZOLE [Concomitant]
     Indication: GASTROOESOPHAGEAL REFLUX DISEASE
     Route: 048
     Dates: start: 20090101
  11. LIDODERM [Concomitant]
     Route: 061
  12. REMICADE [Suspect]
     Indication: ARTHRALGIA
     Route: 042
     Dates: start: 20110810
  13. REMICADE [Suspect]
     Route: 042
     Dates: start: 20110628
  14. REMICADE [Suspect]
     Route: 042
     Dates: start: 20110610
  15. FLUOCINONIDE [Concomitant]
     Indication: PSORIASIS
     Route: 061
     Dates: start: 20100101
  16. NAPROXEN [Concomitant]
     Indication: RHEUMATOID ARTHRITIS
     Route: 048
     Dates: start: 20060101
  17. ASPIRIN [Concomitant]
  18. REMICADE [Suspect]
     Indication: BACK PAIN
     Route: 042
     Dates: start: 20110810
  19. REMICADE [Suspect]
     Route: 042
     Dates: start: 20110610
  20. ATENOLOL [Concomitant]
     Indication: BLOOD PRESSURE
     Route: 048
     Dates: start: 20040101
  21. SIMVASTATIN [Concomitant]
     Indication: BLOOD CHOLESTEROL
     Route: 048
     Dates: start: 20040101
  22. NITROGLYCERIN [Concomitant]
     Indication: CHEST PAIN
     Route: 060

REACTIONS (4)
  - PSORIASIS [None]
  - MOUTH ULCERATION [None]
  - OROMANDIBULAR DYSTONIA [None]
  - ANXIETY [None]
